FAERS Safety Report 24229343 (Version 1)
Quarter: 2024Q3

REPORT INFORMATION
  Report Type: Spontaneous
  Country: GB (occurrence: GB)
  Receive Date: 20240820
  Receipt Date: 20240820
  Transmission Date: 20241016
  Serious: Yes (Other)
  Sender: ACCORD
  Company Number: None

PATIENT
  Age: 74 Year
  Sex: Male
  Weight: 95 kg

DRUGS (4)
  1. AMITRIPTYLINE [Suspect]
     Active Substance: AMITRIPTYLINE
     Indication: Pain
     Dosage: TAKE ONE TABLET EACH NIGHT FOR PAIN. CAN GRADUA..., 10MG TABLET
     Dates: start: 20240715
  2. CODEINE PHOSPHATE [Concomitant]
     Active Substance: CODEINE PHOSPHATE
     Indication: Ill-defined disorder
     Dosage: TAKE ONE OR TWO 4 TIMES DAILY
     Dates: start: 20240415
  3. CALCIUM CARBONATE [Concomitant]
     Active Substance: CALCIUM CARBONATE
     Indication: Ill-defined disorder
     Dosage: TAKE ONE TWICE DAILY
     Dates: start: 20240415
  4. RAMIPRIL [Concomitant]
     Active Substance: RAMIPRIL
     Indication: Hypertension
     Dosage: TAKE ONE DAILY FOR HYPERTENSION. ARRANGE ANNUAL...
     Dates: start: 20240415

REACTIONS (3)
  - Blister [Unknown]
  - Pruritus [Unknown]
  - Skin lesion [Recovered/Resolved]
